FAERS Safety Report 6810227-7 (Version None)
Quarter: 2010Q2

REPORT INFORMATION
  Report Type: 
  Country: None (occurrence: None)
  Receive Date: 20100630
  Receipt Date: 20100325
  Transmission Date: 20101027
  Serious: Yes (Other)
  Sender: FDA-Public Use
  Company Number: JP-PFIZER INC-2010080436

PATIENT
  Age: 78 Year
  Sex: Female

DRUGS (1)
  1. SEIBULE [Suspect]
     Dosage: UNK
     Route: 048
     Dates: start: 20091225, end: 20100316

REACTIONS (1)
  - HEPATIC FUNCTION ABNORMAL [None]
